FAERS Safety Report 5669524-3 (Version None)
Quarter: 2008Q1

REPORT INFORMATION
  Report Type: 
  Country: None (occurrence: None)
  Receive Date: 20080312
  Receipt Date: 20080312
  Transmission Date: 20080703
  Serious: No
  Sender: FDA-Public Use
  Company Number: None

PATIENT
  Sex: Female
  Weight: 47.6277 kg

DRUGS (7)
  1. LEXAPRO [Suspect]
     Indication: DEPRESSION
     Dosage: 10 MG DAILY PO
     Route: 048
     Dates: start: 20071031, end: 20071103
  2. CIPROFLOXACIN [Concomitant]
  3. BELLADONNA [Concomitant]
  4. AMLODIPINE [Concomitant]
  5. MODAFINIL [Concomitant]
  6. MTX LOW DOSE [Concomitant]
  7. DESIDRONATE [Concomitant]

REACTIONS (1)
  - TORTICOLLIS [None]
